FAERS Safety Report 8731699 (Version 2)
Quarter: 2013Q1

REPORT INFORMATION
  Report Type: Spontaneous
  Country: DE (occurrence: DE)
  Receive Date: 20120820
  Receipt Date: 20130328
  Transmission Date: 20140127
  Serious: Yes (Other)
  Sender: FDA-Public Use
  Company Number: DE-PFIZER INC-2012200633

PATIENT
  Sex: Female
  Weight: 88 kg

DRUGS (6)
  1. MINOXIDIL [Suspect]
     Dosage: 20 MG, 2X/DAY
     Route: 048
  2. CANDESARTAN CILEXETIL [Suspect]
     Indication: HYPERTENSION
     Dosage: 32 MG, DAILY
     Route: 048
  3. MOXONIDINE [Suspect]
     Indication: HYPERTENSION
     Dosage: 0.2 MG, 2X/DAY
     Route: 048
  4. BISOPROLOL [Concomitant]
     Dosage: 7.25 MG, DAILY
     Route: 048
  5. HYDROCHLOROTHIAZIDE [Concomitant]
     Indication: HYPERTENSION
     Dosage: 12.5 MG, DAILY
  6. AMLODIPINE [Concomitant]
     Indication: HYPERTENSION
     Dosage: 10 MG,DAILY
     Route: 048

REACTIONS (1)
  - Stillbirth [Unknown]
